FAERS Safety Report 6576009-9 (Version None)
Quarter: 2010Q1

REPORT INFORMATION
  Report Type: 
  Country: None (occurrence: None)
  Receive Date: 20100209
  Receipt Date: 20100127
  Transmission Date: 20100710
  Serious: Yes (Other)
  Sender: FDA-Public Use
  Company Number: PHHY2010DE05077

PATIENT
  Sex: Female

DRUGS (2)
  1. ZOMETA [Suspect]
     Dosage: 5 MG, PER YEAR
     Route: 042
     Dates: start: 20100127
  2. BETA BLOCKING AGENTS [Concomitant]

REACTIONS (3)
  - CARDIOVASCULAR DISORDER [None]
  - CHILLS [None]
  - LOSS OF CONSCIOUSNESS [None]
